FAERS Safety Report 9101573 (Version 1)
Quarter: 2013Q1

REPORT INFORMATION
  Report Type: Spontaneous
  Country: US (occurrence: US)
  Receive Date: 20130218
  Receipt Date: 20130218
  Transmission Date: 20140127
  Serious: Yes (Death)
  Sender: FDA-Public Use
  Company Number: US-COVIDIEN/TYCO HEALTHCARE/MALLINCKRODT-T201300514

PATIENT
  Age: 41 Year
  Sex: Female

DRUGS (4)
  1. PAMELOR [Suspect]
     Dosage: UNK
     Route: 048
  2. ROXICODONE [Suspect]
     Route: 048
  3. SKELETAL MUSCLE RELAXER [Suspect]
     Route: 048
  4. PROMETHAZINE [Suspect]
     Route: 048

REACTIONS (1)
  - Completed suicide [Fatal]
